FAERS Safety Report 8935579 (Version 2)
Quarter: 2012Q4

REPORT INFORMATION
  Report Type: 
  Country: AU (occurrence: AU)
  Receive Date: 20121130
  Receipt Date: 20121206
  Transmission Date: 20130627
  Serious: Yes (Hospitalization, Other)
  Sender: FDA-Public Use
  Company Number: PHHY2012AU099530

PATIENT
  Age: 87 Year
  Sex: Male

DRUGS (12)
  1. SANDOSTATIN LAR [Suspect]
     Indication: NEUROENDOCRINE TUMOUR
     Dosage: 30 mg, UNK
     Route: 030
     Dates: start: 20120927
  2. SANDOSTATIN LAR [Suspect]
     Dosage: 20 mg, UNK
     Route: 030
     Dates: start: 20121031, end: 20121031
  3. ATROVENT [Concomitant]
  4. PULMICORT [Concomitant]
     Route: 048
  5. LIPITOR [Concomitant]
     Indication: LIPIDS INCREASED
     Dosage: 40 mg, UNK
     Route: 048
  6. DOTHIEPIN [Concomitant]
     Dosage: 75 mg, UNK
     Route: 048
  7. ALLOPURINOL [Concomitant]
     Indication: GOUT
     Dosage: 200 mg, UNK
  8. SALICYLATES [Concomitant]
     Dosage: UNK UKN, UNK
  9. ASPIRIN [Concomitant]
     Dosage: 100 mg, UNK
  10. SOMAC [Concomitant]
     Indication: GASTROOESOPHAGEAL REFLUX DISEASE
     Dosage: 40 UNK, UNK
  11. FOSINOPRIL [Concomitant]
     Indication: BLOOD PRESSURE INCREASED
     Dosage: 05 mg, UNK
  12. OSTELIN [Concomitant]
     Indication: HYPOVITAMINOSIS

REACTIONS (9)
  - Blood glucose decreased [Not Recovered/Not Resolved]
  - Confusional state [Unknown]
  - Memory impairment [Unknown]
  - Asthenia [Unknown]
  - Dizziness [Unknown]
  - Malaise [Unknown]
  - Loss of consciousness [Unknown]
  - Blood creatinine increased [Unknown]
  - Glycosylated haemoglobin increased [Unknown]
